FAERS Safety Report 20079808 (Version 2)
Quarter: 2022Q1

REPORT INFORMATION
  Report Type: Other
  Country: US (occurrence: None)
  Receive Date: 20211117
  Receipt Date: 20220225
  Transmission Date: 20220424
  Serious: Yes (Hospitalization)
  Sender: FDA-Public Use
  Company Number: US-ROCHE-2953312

PATIENT
  Age: 30 Year
  Sex: Female
  Weight: 81.720 kg

DRUGS (6)
  1. OCREVUS [Suspect]
     Active Substance: OCRELIZUMAB
     Indication: Relapsing-remitting multiple sclerosis
     Dosage: INFUSE 300MG DAY 1, THEN 300MG ON DAY 15, THEN 600 MG EVERY 6 MONTHS?ADDITIONAL DATE OF TREATMENT: 2
     Route: 042
     Dates: start: 20200114
  2. OCREVUS [Suspect]
     Active Substance: OCRELIZUMAB
     Indication: Multiple sclerosis
     Dosage: ADDITIONAL DATES OF TREATMENT: 15/JAN/2021, 23/JUL/2021
     Route: 042
     Dates: start: 20200714
  3. LARISSIA [Concomitant]
     Active Substance: ETHINYL ESTRADIOL\LEVONORGESTREL
  4. GABAPENTIN [Concomitant]
     Active Substance: GABAPENTIN
  5. ARMODAFINIL [Concomitant]
     Active Substance: ARMODAFINIL
  6. TYSABRI [Concomitant]
     Active Substance: NATALIZUMAB

REACTIONS (1)
  - Crohn^s disease [Not Recovered/Not Resolved]

NARRATIVE: CASE EVENT DATE: 20211001
